FAERS Safety Report 9245510 (Version 1)
Quarter: 2013Q2

REPORT INFORMATION
  Report Type: Report from Study
  Country: FR (occurrence: FR)
  Receive Date: 20130422
  Receipt Date: 20130422
  Transmission Date: 20140414
  Serious: Yes (Other)
  Sender: FDA-Public Use
  Company Number: FR-ASTELLAS-2013EU003501

PATIENT
  Sex: Male

DRUGS (2)
  1. PROGRAF [Suspect]
     Indication: INTESTINAL TRANSPLANT
     Dosage: UNK
     Route: 065
  2. PREDNISONE [Concomitant]
     Indication: INTESTINAL TRANSPLANT
     Dosage: UNK
     Route: 065

REACTIONS (6)
  - Off label use [Unknown]
  - Renal failure chronic [Unknown]
  - Renal failure acute [Unknown]
  - Hypertension [Unknown]
  - Focal segmental glomerulosclerosis [Unknown]
  - Kidney fibrosis [Unknown]
